FAERS Safety Report 6656814-0 (Version None)
Quarter: 2010Q1

REPORT INFORMATION
  Report Type: 
  Country: None (occurrence: None)
  Receive Date: 20100325
  Receipt Date: 20100317
  Transmission Date: 20100710
  Serious: Yes (Hospitalization)
  Sender: FDA-Public Use
  Company Number: ALL1-2010-01527

PATIENT
  Age: 64 Year
  Sex: Female
  Weight: 63.9 kg

DRUGS (6)
  1. FOSRENOL [Suspect]
     Indication: HYPERPHOSPHATAEMIA
     Dosage: MG, 3X/DAY:TID, ORAL
     Route: 048
     Dates: start: 20091201
  2. ASPIRIN [Concomitant]
  3. RENAGEL /01459901/ (SEVELAMER) TABLET [Concomitant]
  4. DIOVAN [Concomitant]
  5. GLUCOPHAGE /00082701/ (METFORMIN) TABLET [Concomitant]
  6. UNSPECIFIED HIGH BLOOD PRESSURE MEDICATION [Concomitant]

REACTIONS (1)
  - CARDIAC FAILURE CONGESTIVE [None]
